FAERS Safety Report 4402276-3 (Version None)
Quarter: 2004Q3

REPORT INFORMATION
  Report Type: 
  Country: None (occurrence: None)
  Receive Date: 20040720
  Receipt Date: 20040715
  Transmission Date: 20050211
  Serious: Yes (Disabling)
  Sender: FDA-Public Use
  Company Number: US-GLAXOSMITHKLINE-A0518724A

PATIENT
  Sex: Female

DRUGS (2)
  1. LAMICTAL [Suspect]
     Indication: DRUG USE FOR UNKNOWN INDICATION
     Route: 048
  2. LITHOBID [Suspect]

REACTIONS (4)
  - ABDOMINAL DISCOMFORT [None]
  - DRUG INTERACTION [None]
  - THERAPEUTIC AGENT TOXICITY [None]
  - TREMOR [None]
